FAERS Safety Report 8350841 (Version 2)
Quarter: 2019Q2

REPORT INFORMATION
  Report Type: Spontaneous
  Country: IT (occurrence: IT)
  Receive Date: 20120124
  Receipt Date: 20190509
  Transmission Date: 20190711
  Serious: Yes (Other)
  Sender: FDA-Public Use
  Company Number: IT-PFIZER INC-2012013175

PATIENT
  Sex: Male
  Weight: 3.08 kg

DRUGS (1)
  1. EPIRUBICIN HCL [Suspect]
     Active Substance: EPIRUBICIN HYDROCHLORIDE
     Indication: BREAST CANCER
     Route: 064

REACTIONS (3)
  - Maternal exposure timing unspecified [Recovered/Resolved]
  - Ventricular hypokinesia [Recovered/Resolved]
  - Infection [Recovered/Resolved]
